FAERS Safety Report 7331918-8 (Version None)
Quarter: 2011Q1

REPORT INFORMATION
  Report Type: 
  Country: None (occurrence: None)
  Receive Date: 20110304
  Receipt Date: 20100217
  Transmission Date: 20110831
  Serious: Yes (Other)
  Sender: FDA-Public Use
  Company Number: US-PFIZER INC-2010021539

PATIENT
  Sex: Female
  Weight: 58 kg

DRUGS (22)
  1. ZOFRAN [Concomitant]
     Indication: NAUSEA
     Dosage: 4 MG, AS NEEDED
     Route: 042
  2. GLYCERIN [Concomitant]
     Dosage: UNK
     Route: 054
     Dates: start: 20010223, end: 20010326
  3. ROCEPHIN [Concomitant]
     Dosage: 1000 MG, UNK
     Route: 042
     Dates: start: 20010223, end: 20010302
  4. MONISTAT 7 [Concomitant]
     Dosage: 100 MG, 1X/DAY
     Route: 067
     Dates: start: 20010224, end: 20010303
  5. PSYLLIUM [Concomitant]
     Dosage: UNK
     Route: 048
     Dates: start: 20010221, end: 20010326
  6. DILANTIN [Suspect]
     Indication: CONVULSION
     Dosage: 100 MG, 3X/DAY
     Route: 048
     Dates: end: 20010301
  7. MILK OF MAGNESIA TAB [Concomitant]
     Indication: CONSTIPATION
     Dosage: 30 ML, 2X/DAY
     Dates: start: 20010220, end: 20010401
  8. SODIUM PHOSPHATES [Concomitant]
     Indication: CONSTIPATION
     Dosage: UNK
     Route: 054
     Dates: start: 20010220, end: 20010401
  9. PROPOFOL [Concomitant]
     Dosage: 500 MG, UNK
     Dates: start: 20010222, end: 20010324
  10. HUMULIN R [Concomitant]
     Dosage: UNK
     Dates: start: 20010223, end: 20010401
  11. ACETAMINOPHEN [Concomitant]
     Indication: PAIN
     Dosage: 650 MG, AS NEEDED
     Route: 048
     Dates: start: 20010221, end: 20010401
  12. NOVOLIN R [Concomitant]
     Dosage: UNK
     Dates: start: 20010223, end: 20010401
  13. DULCOLAX [Concomitant]
     Indication: CONSTIPATION
     Dosage: 10 MG, AS NEEDED
     Route: 054
     Dates: start: 20010221, end: 20010401
  14. PREMARIN [Concomitant]
     Dosage: 0.625 MG, UNK
     Dates: start: 20010221, end: 20010323
  15. SENOKOT [Concomitant]
     Dosage: UNK
     Route: 048
     Dates: start: 20010302, end: 20010331
  16. DECADRON [Concomitant]
     Dosage: 6 MG, 4X/DAY
     Route: 048
     Dates: start: 20010221, end: 20010330
  17. FEVERALL [Concomitant]
     Indication: PAIN
     Dosage: 650 MG, AS NEEDED
     Route: 054
     Dates: start: 20010221, end: 20010325
  18. ZANTAC [Concomitant]
     Dosage: 150 MG, 2X/DAY
     Route: 048
     Dates: start: 20010221, end: 20010401
  19. NIMOTOP [Concomitant]
     Dosage: 60 MG, EVERY 4 HRS
     Route: 048
     Dates: start: 20010222, end: 20010323
  20. HEPARIN SODIUM [Concomitant]
     Dosage: 0.5 ML, 2X/DAY
     Dates: start: 20010301, end: 20010401
  21. TYLENOL W/ CODEINE NO. 3 [Concomitant]
     Indication: PAIN
     Dosage: 30 MG, AS NEEDED
     Dates: start: 20010305, end: 20010308
  22. COLACE [Concomitant]
     Dosage: 100 MG, 2X/DAY
     Route: 048
     Dates: start: 20010221, end: 20010401

REACTIONS (1)
  - STEVENS-JOHNSON SYNDROME [None]
